FAERS Safety Report 7319378-4 (Version None)
Quarter: 2011Q1

REPORT INFORMATION
  Report Type: 
  Country: None (occurrence: None)
  Receive Date: 20110228
  Receipt Date: 20100225
  Transmission Date: 20110831
  Serious: No
  Sender: FDA-Public Use
  Company Number: A0846674A

PATIENT
  Age: 44 Year
  Sex: Female

DRUGS (4)
  1. CELEXA [Concomitant]
     Dosage: 5TAB PER DAY
  2. TRAZODONE [Concomitant]
  3. LITHIUM [Concomitant]
  4. LAMICTAL [Suspect]
     Indication: BIPOLAR DISORDER
     Dosage: 4TAB PER DAY
     Route: 048
     Dates: start: 20090101

REACTIONS (1)
  - ABDOMINAL PAIN [None]
